FAERS Safety Report 12948802 (Version 1)
Quarter: 2016Q4

REPORT INFORMATION
  Report Type: Report from Study
  Country: None (occurrence: US)
  Receive Date: 20161116
  Receipt Date: 20161116
  Transmission Date: 20170207
  Serious: Yes (Hospitalization)
  Sender: FDA-Public Use
  Company Number: US-ENDO PHARMACEUTICALS INC.-2016-006671

PATIENT
  Age: 56 Year
  Sex: Female
  Weight: 77.18 kg

DRUGS (29)
  1. MEPERIDINE HYDROCHLORIDE TABLETS [Suspect]
     Active Substance: MEPERIDINE HYDROCHLORIDE
     Indication: SURGERY
     Route: 065
  2. VERSED [Suspect]
     Active Substance: MIDAZOLAM HYDROCHLORIDE
     Indication: OPEN REDUCTION OF FRACTURE
     Route: 042
     Dates: start: 20160930, end: 20160930
  3. CELEBREX [Concomitant]
     Active Substance: CELECOXIB
     Indication: OPEN REDUCTION OF FRACTURE
     Route: 065
     Dates: start: 20160930, end: 20160930
  4. LACTATED RINGERS [Concomitant]
     Active Substance: CALCIUM CHLORIDE\POTASSIUM CHLORIDE\SODIUM CHLORIDE\SODIUM LACTATE
     Indication: OPEN REDUCTION OF FRACTURE
     Route: 065
     Dates: start: 20160930, end: 20160930
  5. PERCOCET [Suspect]
     Active Substance: ACETAMINOPHEN\OXYCODONE HYDROCHLORIDE
     Indication: ANKLE FRACTURE
     Dosage: 1 TABLET
     Route: 048
     Dates: start: 20160929
  6. FOSAMAX [Concomitant]
     Active Substance: ALENDRONATE SODIUM
     Indication: OSTEOPOROSIS
     Route: 065
     Dates: start: 20150420
  7. SUFENTA [Concomitant]
     Active Substance: SUFENTANIL CITRATE
     Indication: OPEN REDUCTION OF FRACTURE
     Route: 065
     Dates: start: 20160930, end: 20160930
  8. HALDOL [Concomitant]
     Active Substance: HALOPERIDOL
     Indication: OPEN REDUCTION OF FRACTURE
     Route: 065
     Dates: start: 20160930, end: 20160930
  9. FOLIC ACID TABLETS [Concomitant]
     Active Substance: FOLIC ACID
     Indication: NUTRITIONAL SUPPLEMENTATION
     Route: 065
     Dates: start: 20131003
  10. DEXAMETHASONE ELIXIR [Concomitant]
     Active Substance: DEXAMETHASONE
     Indication: OPEN REDUCTION OF FRACTURE
     Route: 065
     Dates: start: 20160930, end: 20160930
  11. ZOFRAN [Concomitant]
     Active Substance: ONDANSETRON HYDROCHLORIDE
     Indication: PROCEDURAL NAUSEA
     Route: 065
     Dates: start: 20160929
  12. SYNTHROID [Concomitant]
     Active Substance: LEVOTHYROXINE SODIUM
     Indication: HYPOTHYROIDISM
     Route: 065
     Dates: start: 198309
  13. METHOTREXATE. [Concomitant]
     Active Substance: METHOTREXATE
     Indication: PSORIATIC ARTHROPATHY
     Route: 065
     Dates: start: 20131003
  14. CALCIUM CARBONATE AND VITAMIN D [Concomitant]
     Active Substance: CALCIUM CARBONATE\VITAMIN D
     Indication: NUTRITIONAL SUPPLEMENTATION
     Route: 065
     Dates: start: 2013
  15. ONDANSETRON [Concomitant]
     Active Substance: ONDANSETRON
     Indication: OPEN REDUCTION OF FRACTURE
     Route: 065
     Dates: start: 20160930, end: 20160930
  16. HYDROCODONE BITARTRATE / ACETAMINOPHEN [Suspect]
     Active Substance: ACETAMINOPHEN\HYDROCODONE BITARTRATE
     Indication: SURGERY
     Route: 065
  17. FENTANYL CITRATE. [Suspect]
     Active Substance: FENTANYL CITRATE
     Indication: OPEN REDUCTION OF FRACTURE
     Route: 042
     Dates: start: 20160930, end: 20160930
  18. HYOSCINE [Concomitant]
     Active Substance: SCOPOLAMINE
     Indication: OPEN REDUCTION OF FRACTURE
     Route: 065
     Dates: start: 20160930, end: 20160930
  19. LYRICA [Concomitant]
     Active Substance: PREGABALIN
     Indication: OPEN REDUCTION OF FRACTURE
     Route: 065
     Dates: start: 20160930, end: 20160930
  20. PROPOFOL. [Concomitant]
     Active Substance: PROPOFOL
     Indication: OPEN REDUCTION OF FRACTURE
     Route: 065
     Dates: start: 20160930, end: 20160930
  21. HYDROMORPHONE [Suspect]
     Active Substance: HYDROMORPHONE
     Indication: SURGERY
     Route: 065
  22. LIDOCAINE. [Concomitant]
     Active Substance: LIDOCAINE
     Indication: OPEN REDUCTION OF FRACTURE
     Route: 065
     Dates: start: 20160930, end: 20160930
  23. CEFAZOLIN [Concomitant]
     Active Substance: CEFAZOLIN
     Indication: OPEN REDUCTION OF FRACTURE
     Route: 065
     Dates: start: 20160930, end: 20160930
  24. TOFACITINIB CITRATE [Suspect]
     Active Substance: TOFACITINIB CITRATE
     Indication: PSORIATIC ARTHROPATHY
     Route: 048
     Dates: start: 201411, end: 20160927
  25. TYLENOL [Concomitant]
     Active Substance: ACETAMINOPHEN
     Indication: OPEN REDUCTION OF FRACTURE
     Route: 065
     Dates: start: 20160930, end: 20160930
  26. NUCYNTA [Concomitant]
     Active Substance: TAPENTADOL HYDROCHLORIDE
     Indication: OPEN REDUCTION OF FRACTURE
     Route: 065
     Dates: start: 20160930, end: 20160930
  27. MORPHINE SULFATE. [Suspect]
     Active Substance: MORPHINE SULFATE
     Indication: OPEN REDUCTION OF FRACTURE
     Route: 042
     Dates: start: 20160930, end: 20160930
  28. REMIFENTANIL [Concomitant]
     Active Substance: REMIFENTANIL
     Indication: OPEN REDUCTION OF FRACTURE
     Route: 065
     Dates: start: 20160930, end: 20160930
  29. EPHEDRINE. [Concomitant]
     Active Substance: EPHEDRINE
     Indication: OPEN REDUCTION OF FRACTURE
     Route: 065
     Dates: start: 20160930, end: 20160930

REACTIONS (3)
  - Hypoxia [Recovered/Resolved]
  - Supraventricular extrasystoles [Recovered/Resolved]
  - Apnoea [Recovered/Resolved]

NARRATIVE: CASE EVENT DATE: 20160930
